FAERS Safety Report 23101212 (Version 2)
Quarter: 2023Q4

REPORT INFORMATION
  Report Type: Spontaneous
  Country: CA (occurrence: CA)
  Receive Date: 20231024
  Receipt Date: 20231124
  Transmission Date: 20240110
  Serious: Yes (Death)
  Sender: FDA-Public Use
  Company Number: CA-PFIZER INC-202300281372

PATIENT
  Age: 44 Year
  Sex: Male

DRUGS (2)
  1. RUXIENCE [Suspect]
     Active Substance: RITUXIMAB-PVVR
     Indication: Pulmonary haemosiderosis
     Dosage: 700 MG, WEEKLY,700 X 4 WEEKS = 2800MG - NOT STARTED YET
     Route: 042
     Dates: start: 20230816
  2. RUXIENCE [Suspect]
     Active Substance: RITUXIMAB-PVVR
     Dosage: 700 MG, WEEKLY,700 X 4 WEEKS = 2800MG - NOT STARTED YET
     Route: 042
     Dates: start: 20230823

REACTIONS (2)
  - Death [Fatal]
  - Off label use [Unknown]
